FAERS Safety Report 9827661 (Version 2)
Quarter: 2014Q1

REPORT INFORMATION
  Report Type: Spontaneous
  Country: JP (occurrence: JP)
  Receive Date: 20140117
  Receipt Date: 20140213
  Transmission Date: 20141002
  Serious: Yes (Other)
  Sender: FDA-Public Use
  Company Number: JP-B.I. PHARMACEUTICALS,INC./RIDGEFIELD-2014-BI-01638GD

PATIENT
  Age: 48 Year
  Sex: Female

DRUGS (3)
  1. BI-SIFROL [Suspect]
     Indication: PARKINSON^S DISEASE
     Dosage: 0.75 MG
     Route: 065
  2. LEVODOPA [Suspect]
     Indication: PARKINSON^S DISEASE
     Dosage: 250 MG
     Route: 065
  3. TRIHEXYPHENIDYL HYDROCHLORIDE [Suspect]
     Indication: PARKINSON^S DISEASE
     Dosage: 3 MG
     Route: 065

REACTIONS (3)
  - Parkinsonism [Recovered/Resolved]
  - Hallucination, auditory [Recovered/Resolved]
  - Hypokinesia [Unknown]
